FAERS Safety Report 16721565 (Version 1)
Quarter: 2019Q3

REPORT INFORMATION
  Report Type: Spontaneous
  Country: US (occurrence: US)
  Receive Date: 20190820
  Receipt Date: 20190820
  Transmission Date: 20191005
  Serious: No
  Sender: FDA-Public Use
  Company Number: US-BIODELIVERY SCIENCES INTERNATIONAL-2018BDSI0526

PATIENT
  Age: 84 Year
  Sex: Female
  Weight: 77.18 kg

DRUGS (2)
  1. AMLODIPINE [Concomitant]
     Active Substance: AMLODIPINE BESYLATE
     Indication: HYPERTENSION
     Dosage: UNKNOWN
     Route: 048
  2. BUPRENORPHINE. [Suspect]
     Active Substance: BUPRENORPHINE
     Indication: PRODUCT USED FOR UNKNOWN INDICATION
     Route: 002
     Dates: start: 20180927

REACTIONS (3)
  - Arrhythmia [Not Recovered/Not Resolved]
  - Product packaging difficult to open [Unknown]
  - Oral administration complication [Unknown]

NARRATIVE: CASE EVENT DATE: 201809
